FAERS Safety Report 4390605-9 (Version None)
Quarter: 2004Q2

REPORT INFORMATION
  Report Type: 
  Country: None (occurrence: None)
  Receive Date: 20040630
  Receipt Date: 20040617
  Transmission Date: 20050107
  Serious: Yes (Other)
  Sender: FDA-Public Use
  Company Number: 139240USA

PATIENT
  Age: 42 Year
  Sex: Male

DRUGS (1)
  1. COPAXONE [Suspect]
     Indication: MULTIPLE SCLEROSIS RELAPSE
     Dosage: 20  MILLIGRAM QD SUBCUTANEOUS
     Route: 058
     Dates: start: 19970701

REACTIONS (5)
  - BLISTER [None]
  - ESCHAR [None]
  - INJECTION SITE ERYTHEMA [None]
  - INJECTION SITE PAIN [None]
  - INJECTION SITE VESICLES [None]
